FAERS Safety Report 13246496 (Version 1)
Quarter: 2017Q1

REPORT INFORMATION
  Report Type: Spontaneous
  Country: FR (occurrence: FR)
  Receive Date: 20170217
  Receipt Date: 20170217
  Transmission Date: 20170428
  Serious: Yes (Hospitalization, Other)
  Sender: FDA-Public Use
  Company Number: FR-JNJFOC-20170215849

PATIENT

DRUGS (1)
  1. RISPERIDONE. [Suspect]
     Active Substance: RISPERIDONE
     Indication: PRODUCT USED FOR UNKNOWN INDICATION
     Route: 065

REACTIONS (12)
  - Hospitalisation [Unknown]
  - Overdose [Unknown]
  - Wrong drug administered [Unknown]
  - Off label use [Unknown]
  - Extrapyramidal disorder [Unknown]
  - Cardiac disorder [Unknown]
  - Nervous system disorder [Unknown]
  - Somnolence [Unknown]
  - Wrong patient received medication [Unknown]
  - Dizziness [Unknown]
  - Adverse event [Unknown]
  - Inappropriate schedule of drug administration [Unknown]
